FAERS Safety Report 5658046-1 (Version None)
Quarter: 2008Q1

REPORT INFORMATION
  Report Type: 
  Country: None (occurrence: None)
  Receive Date: 20080310
  Receipt Date: 20070219
  Transmission Date: 20080703
  Serious: No
  Sender: FDA-Public Use
  Company Number: US-BAYER-200614964BCC

PATIENT
  Age: 79 Year
  Sex: Female
  Weight: 109 kg

DRUGS (5)
  1. ALEVE [Suspect]
     Indication: ARTHRITIS
     Dosage: TOTAL DAILY DOSE: 220 MG  UNIT DOSE: 220 MG
     Route: 048
     Dates: start: 20061210
  2. OXYGEN [Concomitant]
  3. PREDNISONE TAB [Concomitant]
  4. UNKNOWN BLOOD PRESSURE PILL [Concomitant]
  5. SINGULAIR [Concomitant]

REACTIONS (1)
  - THROAT IRRITATION [None]
